FAERS Safety Report 18232670 (Version 1)
Quarter: 2020Q3

REPORT INFORMATION
  Report Type: Spontaneous
  Country: AU (occurrence: AU)
  Receive Date: 20200904
  Receipt Date: 20200904
  Transmission Date: 20201103
  Serious: Yes (Other)
  Sender: FDA-Public Use
  Company Number: AU-TAKEDA-2020TUS037323

PATIENT
  Age: 61 Year

DRUGS (5)
  1. BACTRIM [Concomitant]
     Active Substance: SULFAMETHOXAZOLE\TRIMETHOPRIM
     Indication: PROPHYLAXIS
     Dosage: UNK
     Route: 065
  2. BORTEZOMIB. [Suspect]
     Active Substance: BORTEZOMIB
     Indication: STEM CELL TRANSPLANT
     Dosage: UNK
     Route: 065
  3. BORTEZOMIB. [Suspect]
     Active Substance: BORTEZOMIB
     Indication: IMMUNOSUPPRESSANT DRUG THERAPY
  4. PREDNISOLONE. [Suspect]
     Active Substance: PREDNISOLONE
     Indication: IMMUNOSUPPRESSANT DRUG THERAPY
  5. PREDNISOLONE. [Suspect]
     Active Substance: PREDNISOLONE
     Indication: STEM CELL TRANSPLANT
     Dosage: UNK
     Route: 065

REACTIONS (4)
  - Pneumococcal infection [Recovered/Resolved]
  - Pneumonia [Unknown]
  - Product use in unapproved indication [Unknown]
  - Off label use [Unknown]
